FAERS Safety Report 5939339-7 (Version None)
Quarter: 2008Q4

REPORT INFORMATION
  Report Type: 
  Country: None (occurrence: None)
  Receive Date: 20081103
  Receipt Date: 20081021
  Transmission Date: 20090506
  Serious: Yes (Hospitalization)
  Sender: FDA-Public Use
  Company Number: US-ELI_LILLY_AND_COMPANY-US200810004992

PATIENT
  Age: 20 Year
  Sex: Female

DRUGS (5)
  1. CYMBALTA [Suspect]
     Indication: NEUROPATHY PERIPHERAL
     Dosage: 90 MG, DAILY (1/D)
     Dates: start: 20080801
  2. HUMALOG [Concomitant]
  3. LANTUS [Concomitant]
  4. PERCOCET [Concomitant]
     Dosage: UNK, AS NEEDED
  5. FENTANYL [Concomitant]

REACTIONS (2)
  - PAIN [None]
  - WEIGHT DECREASED [None]
